FAERS Safety Report 9025011 (Version 1)
Quarter: 2013Q1

REPORT INFORMATION
  Report Type: Spontaneous
  Country: FR (occurrence: None)
  Receive Date: 20130107
  Receipt Date: 20130107
  Transmission Date: 20140127
  Serious: Yes (Other)
  Sender: FDA-Public Use
  Company Number: AG-2012-1529

PATIENT
  Age: 81 Year
  Sex: Male

DRUGS (5)
  1. CHLORAMBUCIL [Suspect]
     Indication: CHRONIC LYMPHOCYTIC LEUKAEMIA
     Dosage: (D1+D15/ 28 D)
     Route: 048
     Dates: start: 20100817
  2. RITUXIMAB [Suspect]
     Indication: CHRONIC LYMPHOCYTIC LEUKAEMIA
     Dosage: (D1/ 28 D) (DAY 1 AND 15)
     Route: 042
     Dates: start: 20100817, end: 20110104
  3. COAPROVEL (HYDROCHLOROTHIAZODE, IRBESARTAN) [Concomitant]
  4. MEDIATENSYL (URAPIDIL) [Concomitant]
  5. LANSOPRAZOLE (LANSOPRAZOLE) [Concomitant]

REACTIONS (1)
  - Transitional cell carcinoma [None]
